FAERS Safety Report 19994212 (Version 1)
Quarter: 2021Q4

REPORT INFORMATION
  Report Type: Spontaneous
  Country: CN (occurrence: CN)
  Receive Date: 20211026
  Receipt Date: 20211026
  Transmission Date: 20220304
  Serious: Yes (Other)
  Sender: FDA-Public Use
  Company Number: CN-ASTELLAS-2021US039894

PATIENT
  Sex: Male

DRUGS (2)
  1. HARNAL [Suspect]
     Active Substance: TAMSULOSIN HYDROCHLORIDE
     Indication: Benign prostatic hyperplasia
     Dosage: 1 DF, QD (1 CAPSULE EVERY NIGHT)
     Route: 048
  2. HARNAL [Suspect]
     Active Substance: TAMSULOSIN HYDROCHLORIDE
     Dosage: 1 DF, QD (1 CAPSULE EVERY NIGHT)
     Route: 048

REACTIONS (9)
  - Suicidal ideation [Unknown]
  - Gastrooesophageal reflux disease [Unknown]
  - Dyspepsia [Unknown]
  - Discomfort [Unknown]
  - Dyspepsia [Unknown]
  - Quality of life decreased [Unknown]
  - Chills [Unknown]
  - Abdominal discomfort [Unknown]
  - Priapism [Unknown]
